FAERS Safety Report 16741312 (Version 1)
Quarter: 2019Q3

REPORT INFORMATION
  Report Type: Spontaneous
  Country: AU (occurrence: AU)
  Receive Date: 20190826
  Receipt Date: 20190826
  Transmission Date: 20191005
  Serious: Yes (Other)
  Sender: FDA-Public Use
  Company Number: AU-NALPROPION PHARMACEUTICALS INC.-2019-007575

PATIENT

DRUGS (2)
  1. PERINDOPRIL [Concomitant]
     Active Substance: PERINDOPRIL
     Indication: HYPERTENSION
     Dosage: UNK
     Route: 048
  2. CONTRAVE [Suspect]
     Active Substance: BUPROPION HYDROCHLORIDE\NALTREXONE HYDROCHLORIDE
     Indication: WEIGHT DECREASED
     Dosage: TWO DOSE FORMS TWICE DAILY (2 IN 1 DAYS)
     Route: 065
     Dates: end: 20190514

REACTIONS (6)
  - Mouth ulceration [Recovered/Resolved]
  - Lip swelling [Recovered/Resolved]
  - Tissue infiltration [Recovered/Resolved]
  - Oral disorder [Recovered/Resolved]
  - Erythema multiforme [Unknown]
  - Nausea [Unknown]

NARRATIVE: CASE EVENT DATE: 20190510
